FAERS Safety Report 17922232 (Version 1)
Quarter: 2020Q2

REPORT INFORMATION
  Report Type: Spontaneous
  Country: US (occurrence: US)
  Receive Date: 20200622
  Receipt Date: 20200622
  Transmission Date: 20200714
  Serious: No
  Sender: FDA-Public Use
  Company Number: US-JNJFOC-20200618456

PATIENT
  Sex: Male

DRUGS (4)
  1. INVEGA SUSTENNA [Suspect]
     Active Substance: PALIPERIDONE PALMITATE
  2. INVEGA SUSTENNA [Suspect]
     Active Substance: PALIPERIDONE PALMITATE
     Dosage: 2 DAYS LATER
     Route: 030
     Dates: start: 2020
  3. INVEGA SUSTENNA [Suspect]
     Active Substance: PALIPERIDONE PALMITATE
     Indication: SCHIZOAFFECTIVE DISORDER
     Route: 030
     Dates: start: 2020
  4. RISPERIDONE. [Concomitant]
     Active Substance: RISPERIDONE
     Route: 065
     Dates: start: 2020

REACTIONS (5)
  - Off label use [Unknown]
  - Paranoia [Unknown]
  - Incorrect dose administered [Unknown]
  - Substance-induced psychotic disorder [Unknown]
  - Weight increased [Unknown]

NARRATIVE: CASE EVENT DATE: 2020
